FAERS Safety Report 26189498 (Version 1)
Quarter: 2025Q4

REPORT INFORMATION
  Report Type: Spontaneous
  Country: JP (occurrence: JP)
  Receive Date: 20251223
  Receipt Date: 20251223
  Transmission Date: 20260117
  Serious: Yes (Life-Threatening, Hospitalization)
  Sender: ASTELLAS
  Company Number: JP-ASTELLAS-2025-AER-070327

PATIENT
  Age: 80 Year
  Sex: Female
  Weight: 51 kg

DRUGS (11)
  1. VESICARE [Suspect]
     Active Substance: SOLIFENACIN SUCCINATE
     Indication: Hypertonic bladder
     Route: 048
     Dates: start: 20220216, end: 20250605
  2. ESOMEPRAZOLE [Suspect]
     Active Substance: ESOMEPRAZOLE
     Indication: Product used for unknown indication
     Route: 048
     Dates: end: 20250606
  3. FAMOTIDINE [Suspect]
     Active Substance: FAMOTIDINE
     Indication: Prophylaxis
     Route: 042
     Dates: end: 20250611
  4. TRICHLORMETHIAZIDE [Suspect]
     Active Substance: TRICHLORMETHIAZIDE
     Indication: Oedema
     Route: 048
     Dates: start: 20241002, end: 20250606
  5. DULOXETINE OD Tablet [Concomitant]
     Indication: Product used for unknown indication
     Route: 048
  6. NITRAZEPAM [Concomitant]
     Active Substance: NITRAZEPAM
     Indication: Product used for unknown indication
     Route: 048
  7. GABAPEN Tablet [Concomitant]
     Indication: Product used for unknown indication
     Route: 048
  8. Amlodin OD Tablet [Concomitant]
     Indication: Product used for unknown indication
     Route: 048
  9. ZOLPIDEM TARTRATE [Concomitant]
     Active Substance: ZOLPIDEM TARTRATE
     Indication: Product used for unknown indication
     Route: 048
  10. Methycobal Tablet [Concomitant]
     Indication: Product used for unknown indication
     Route: 048
  11. LIMAPROST ALFADEX Tablet [Concomitant]
     Indication: Product used for unknown indication
     Route: 048

REACTIONS (1)
  - Electrocardiogram QT prolonged [Recovering/Resolving]

NARRATIVE: CASE EVENT DATE: 20250605
